FAERS Safety Report 18347204 (Version 2)
Quarter: 2020Q4

REPORT INFORMATION
  Report Type: Other
  Country: SK (occurrence: SK)
  Receive Date: 20201005
  Receipt Date: 20201007
  Transmission Date: 20210114
  Serious: Yes (Death)
  Sender: FDA-Public Use
  Company Number: SK-ROCHE-2686530

PATIENT
  Age: 89 Year
  Sex: Male

DRUGS (2)
  1. GAZYVARO [Suspect]
     Active Substance: OBINUTUZUMAB
     Indication: CHRONIC LYMPHOCYTIC LEUKAEMIA
     Route: 042
     Dates: start: 201511, end: 201605
  2. CHLORAMBUCIL [Suspect]
     Active Substance: CHLORAMBUCIL
     Indication: CHRONIC LYMPHOCYTIC LEUKAEMIA
     Route: 065
     Dates: start: 201511, end: 201605

REACTIONS (4)
  - Tremor [Recovered/Resolved]
  - Catarrh [Unknown]
  - Productive cough [Unknown]
  - Pyrexia [Unknown]
